FAERS Safety Report 5134659-0 (Version None)
Quarter: 2006Q4

REPORT INFORMATION
  Report Type: 
  Country: None (occurrence: None)
  Receive Date: 20061025
  Receipt Date: 20061017
  Transmission Date: 20070319
  Serious: Yes (Hospitalization)
  Sender: FDA-Public Use
  Company Number: FR-GLAXOSMITHKLINE-B0443474A

PATIENT
  Age: 57 Year
  Sex: Female
  Weight: 67 kg

DRUGS (10)
  1. ZOFRAN [Suspect]
     Dosage: 8MG PER DAY
     Route: 042
     Dates: start: 20060904
  2. ELVORINE [Suspect]
     Indication: EXTRANODAL MARGINAL ZONE B-CELL LYMPHOMA (MALT TYPE)
     Dosage: 350MG PER DAY
     Route: 042
     Dates: start: 20060904, end: 20061002
  3. CAMPTOSAR [Concomitant]
     Indication: EXTRANODAL MARGINAL ZONE B-CELL LYMPHOMA (MALT TYPE)
     Dosage: 315MG PER DAY
     Route: 042
     Dates: start: 20060904, end: 20060918
  4. ATROPINE SULFATE [Concomitant]
     Dosage: .25MG PER DAY
     Route: 042
     Dates: start: 20060904, end: 20060918
  5. ZANTAC [Concomitant]
     Indication: PREMEDICATION
     Route: 065
     Dates: start: 20060918
  6. POLARAMINE [Concomitant]
     Indication: PREMEDICATION
     Route: 065
     Dates: start: 20060918
  7. SOLU-MEDROL [Concomitant]
     Indication: PREMEDICATION
     Route: 065
     Dates: start: 20060918
  8. PLITICAN [Concomitant]
     Route: 065
     Dates: start: 20061002
  9. OXALIPLATIN [Concomitant]
     Route: 042
     Dates: start: 20061002
  10. FLUOROURACIL [Concomitant]
     Route: 042
     Dates: start: 20061002

REACTIONS (4)
  - CONJUNCTIVAL HYPERAEMIA [None]
  - DYSPNOEA [None]
  - SENSE OF OPPRESSION [None]
  - SWELLING FACE [None]
